FAERS Safety Report 9430261 (Version 1)
Quarter: 2013Q3

REPORT INFORMATION
  Report Type: Spontaneous
  Country: US (occurrence: US)
  Receive Date: 20130730
  Receipt Date: 20130730
  Transmission Date: 20140515
  Serious: No
  Sender: FDA-Public Use
  Company Number: US-ABBOTT-13P-163-1052999-00

PATIENT
  Age: 63 Year
  Sex: Male
  Weight: 81.72 kg

DRUGS (10)
  1. NIASPAN (COATED) [Suspect]
     Indication: BLOOD CHOLESTEROL INCREASED
     Dates: start: 2011, end: 201212
  2. NIASPAN (COATED) [Suspect]
     Dates: start: 201212, end: 20130215
  3. NIASPAN (COATED) [Suspect]
     Dates: start: 20130216
  4. ASPIRIN [Concomitant]
     Indication: DRUG THERAPY
     Dates: start: 2011
  5. PRAVASTATIN [Concomitant]
     Indication: BLOOD CHOLESTEROL INCREASED
  6. LEVOTHYROXINE [Concomitant]
     Indication: HYPOTHYROIDISM
  7. VITAMIN D [Concomitant]
     Indication: VITAMIN D DEFICIENCY
  8. METOPROLOL [Concomitant]
     Indication: HYPERTENSION
  9. LUNESTA [Concomitant]
     Indication: INSOMNIA
  10. MULTIVITAMIN [Concomitant]
     Indication: VITAMIN SUPPLEMENTATION

REACTIONS (2)
  - Pruritus [Not Recovered/Not Resolved]
  - Paraesthesia [Not Recovered/Not Resolved]
